FAERS Safety Report 21284539 (Version 1)
Quarter: 2022Q3

REPORT INFORMATION
  Report Type: Spontaneous
  Country: US (occurrence: US)
  Receive Date: 20220902
  Receipt Date: 20220902
  Transmission Date: 20221026
  Serious: No
  Sender: FDA-Public Use
  Company Number: US-ESPERIONTHERAPEUTICS-2022USA01478

PATIENT
  Age: 60 Year
  Sex: Male
  Weight: 86.168 kg

DRUGS (1)
  1. NEXLIZET [Suspect]
     Active Substance: BEMPEDOIC ACID\EZETIMIBE
     Indication: Blood cholesterol
     Dosage: 180 MILLIGRAM/ 10 MILLIGRAM, QD
     Route: 048
     Dates: start: 2021, end: 20220712

REACTIONS (8)
  - Tendon pain [Not Recovered/Not Resolved]
  - Contusion [Not Recovered/Not Resolved]
  - Skin disorder [Not Recovered/Not Resolved]
  - Scab [Not Recovered/Not Resolved]
  - Acne [Not Recovered/Not Resolved]
  - Psoriasis [Not Recovered/Not Resolved]
  - Skin exfoliation [Not Recovered/Not Resolved]
  - Arthralgia [Not Recovered/Not Resolved]

NARRATIVE: CASE EVENT DATE: 20220101
